FAERS Safety Report 9525397 (Version 1)
Quarter: 2013Q3

REPORT INFORMATION
  Report Type: Spontaneous
  Country: US (occurrence: None)
  Receive Date: 20130912
  Receipt Date: 20130912
  Transmission Date: 20140515
  Serious: Yes (Other)
  Sender: FDA-Public Use
  Company Number: USA/USA/13/0034548

PATIENT
  Age: 16 Year
  Sex: Male

DRUGS (3)
  1. ZENATANE [Suspect]
     Indication: ACNE CYSTIC
     Dosage: 1 IN 1 D
  2. MONTELUKAST [Concomitant]
  3. ALBUTEROL (SALBUTAMOL) [Concomitant]

REACTIONS (5)
  - Skin fragility [None]
  - Cheilitis [None]
  - Xerosis [None]
  - Joint injury [None]
  - Skin erosion [None]
